FAERS Safety Report 8346405-8 (Version None)
Quarter: 2012Q2

REPORT INFORMATION
  Report Type: 
  Country: None (occurrence: None)
  Receive Date: 20120509
  Receipt Date: 20120427
  Transmission Date: 20120825
  Serious: Yes (Hospitalization)
  Sender: FDA-Public Use
  Company Number: AT-BRISTOL-MYERS SQUIBB COMPANY-16569972

PATIENT
  Sex: Male

DRUGS (2)
  1. ETHANOL [Suspect]
     Route: 048
     Dates: start: 20111215, end: 20111215
  2. GLUCOPHAGE [Suspect]
     Dosage: GLUCOPHAGE 1000MG 50 DOSAGE FORM ONCE
     Route: 048
     Dates: start: 20111215, end: 20111215

REACTIONS (7)
  - DIARRHOEA [None]
  - ACIDOSIS [None]
  - RENAL FAILURE [None]
  - INTENTIONAL OVERDOSE [None]
  - SINUS TACHYCARDIA [None]
  - TRANSAMINASES INCREASED [None]
  - HYPOTENSION [None]
